FAERS Safety Report 16806444 (Version 1)
Quarter: 2019Q3

REPORT INFORMATION
  Report Type: Spontaneous
  Country: IT (occurrence: IT)
  Receive Date: 20190913
  Receipt Date: 20190913
  Transmission Date: 20191005
  Serious: Yes (Disabling, Other)
  Sender: FDA-Public Use
  Company Number: IT-GUERBET-IT-20190147

PATIENT
  Age: 82 Year
  Sex: Male

DRUGS (2)
  1. LIPIODOL [Suspect]
     Active Substance: ETHIODIZED OIL
     Indication: THERAPEUTIC EMBOLISATION
     Route: 013
  2. GLUBRAN 2 [Suspect]
     Active Substance: DEVICE
     Indication: THERAPEUTIC EMBOLISATION
     Route: 013

REACTIONS (2)
  - Paraplegia [Recovered/Resolved with Sequelae]
  - Spinal cord ischaemia [Recovered/Resolved with Sequelae]
